FAERS Safety Report 15876796 (Version 3)
Quarter: 2019Q1

REPORT INFORMATION
  Report Type: Spontaneous
  Country: US (occurrence: US)
  Receive Date: 20190127
  Receipt Date: 20190305
  Transmission Date: 20190417
  Serious: No
  Sender: FDA-Public Use
  Company Number: US-009507513-1901USA009080

PATIENT
  Sex: Female

DRUGS (2)
  1. BELSOMRA [Suspect]
     Active Substance: SUVOREXANT
     Indication: SLEEP DISORDER
     Dosage: 1 TABLET, QD, 30 COUNT (CT) (3X 10UU BLISTER CARD)
     Route: 048
     Dates: start: 201901, end: 201901
  2. BELSOMRA [Suspect]
     Active Substance: SUVOREXANT
     Dosage: STARTED FROM SEVERAL YEARS AGO
     Route: 048

REACTIONS (6)
  - Product shape issue [Unknown]
  - Dysphagia [Unknown]
  - Product quality issue [Unknown]
  - Product colour issue [Unknown]
  - Product size issue [Unknown]
  - Wrong technique in product usage process [Unknown]

NARRATIVE: CASE EVENT DATE: 201901
